FAERS Safety Report 25362025 (Version 1)
Quarter: 2025Q2

REPORT INFORMATION
  Report Type: Spontaneous
  Country: CN (occurrence: CN)
  Receive Date: 20250527
  Receipt Date: 20250527
  Transmission Date: 20250717
  Serious: Yes (Other)
  Sender: RANBAXY
  Company Number: CN-SUN PHARMACEUTICAL INDUSTRIES LTD-2025R1-508364

PATIENT
  Age: 64 Year
  Sex: Female
  Weight: 50 kg

DRUGS (3)
  1. PALIPERIDONE [Suspect]
     Active Substance: PALIPERIDONE
     Indication: Bipolar disorder
     Dosage: 1.5 MILLIGRAM, QD
     Route: 048
     Dates: start: 20250108, end: 20250422
  2. VALPROATE SODIUM [Suspect]
     Active Substance: VALPROATE SODIUM
     Indication: Bipolar disorder
     Dosage: 1 GRAM, QD
     Route: 065
     Dates: start: 20241227, end: 20250116
  3. VALPROATE SODIUM [Suspect]
     Active Substance: VALPROATE SODIUM
     Dosage: 0.25 GRAM, QD
     Route: 065
     Dates: start: 20250117, end: 20250422

REACTIONS (1)
  - Electrocardiogram QT prolonged [Recovered/Resolved]
